FAERS Safety Report 11266574 (Version 2)
Quarter: 2015Q3

REPORT INFORMATION
  Report Type: Spontaneous
  Country: US (occurrence: US)
  Receive Date: 20150713
  Receipt Date: 20150731
  Transmission Date: 20151125
  Serious: No
  Sender: FDA-Public Use
  Company Number: US-PFIZER INC-2015192420

PATIENT
  Age: 36 Year
  Sex: Female

DRUGS (10)
  1. SUMATRIPTAN SUCCINATE. [Concomitant]
     Active Substance: SUMATRIPTAN SUCCINATE
     Indication: HEADACHE
     Dosage: 100 MG, AS NEEDED (MAY REPEAT ONE TIME IN 2 HOURS AS NEEDED)
     Route: 048
     Dates: start: 20150709
  2. PROAIR HFA [Concomitant]
     Active Substance: ALBUTEROL SULFATE
     Dosage: UNK, AS NEEDED (HFA 108 (90 BASE) MCG/ACT INHALE 2 PUFFS BY MOUTH EVERY SIX HOURS)
     Route: 048
     Dates: start: 20150310
  3. IBUPROFEN. [Concomitant]
     Active Substance: IBUPROFEN
     Dosage: 200 MG, AS NEEDED (2-3 TABLET)
     Dates: start: 20131210
  4. MORPHINE [Concomitant]
     Active Substance: MORPHINE
     Dosage: UNK
     Dates: start: 2010
  5. TIZANIDINE. [Concomitant]
     Active Substance: TIZANIDINE
     Dosage: UNK
     Dates: start: 2013
  6. MORPHINE SULFATE. [Concomitant]
     Active Substance: MORPHINE SULFATE
     Dosage: 60 MG, AS NEEDED (1 TABLET ER TWICE DAILY PRN)
     Dates: start: 20150721
  7. LYRICA [Suspect]
     Active Substance: PREGABALIN
     Dosage: 200 MG, 2X/DAY
     Dates: start: 20150408
  8. LYRICA [Suspect]
     Active Substance: PREGABALIN
     Dosage: 200 MG, 2X/DAY
  9. TIZANIDINE. [Concomitant]
     Active Substance: TIZANIDINE
     Dosage: 4 MG, 1X/DAY (1 AT BEDTIME AS NEEDED)
     Dates: start: 20150115
  10. MORPHINE SULFATE. [Concomitant]
     Active Substance: MORPHINE SULFATE
     Dosage: 15 MG, AS NEEDED(2 TABLET DAILY PRN)
     Dates: start: 20150721

REACTIONS (1)
  - Impaired work ability [Unknown]
